FAERS Safety Report 10032241 (Version 1)
Quarter: 2014Q1

REPORT INFORMATION
  Report Type: Spontaneous
  Country: DE (occurrence: DE)
  Receive Date: 20140324
  Receipt Date: 20140324
  Transmission Date: 20141002
  Serious: Yes (Other)
  Sender: FDA-Public Use
  Company Number: DE-SA-2014SA035775

PATIENT
  Age: 71 Year
  Sex: Male

DRUGS (1)
  1. BCG FOR IMMUNOTHERAPY [Suspect]
     Indication: BLADDER CANCER
     Route: 043

REACTIONS (7)
  - Bovine tuberculosis [Unknown]
  - Pyrexia [Unknown]
  - Fatigue [Unknown]
  - Dysuria [Unknown]
  - General physical health deterioration [Recovering/Resolving]
  - Pneumonitis [Recovering/Resolving]
  - Pulmonary fibrosis [Recovering/Resolving]
